FAERS Safety Report 9571935 (Version 1)
Quarter: 2013Q4

REPORT INFORMATION
  Report Type: Spontaneous
  Country: JP (occurrence: JP)
  Receive Date: 20131001
  Receipt Date: 20131001
  Transmission Date: 20140711
  Serious: Yes (Death)
  Sender: FDA-Public Use
  Company Number: JP-BAXTER-2013BAX037477

PATIENT
  Age: 38 Year
  Sex: Male
  Weight: 76 kg

DRUGS (3)
  1. FEIBA FOR INJECTION 1000 [Suspect]
     Indication: FACTOR IX DEFICIENCY
     Route: 065
     Dates: start: 201306, end: 201306
  2. NOVOSEVEN HI [Suspect]
     Indication: HAEMOSTASIS
     Route: 042
     Dates: start: 201308, end: 201308
  3. NOVOSEVEN HI [Suspect]
     Indication: HAEMORRHAGE INTRACRANIAL

REACTIONS (1)
  - Haemorrhage intracranial [Fatal]
